FAERS Safety Report 21746905 (Version 6)
Quarter: 2023Q4

REPORT INFORMATION
  Report Type: Report from Study
  Country: US (occurrence: US)
  Receive Date: 20221219
  Receipt Date: 20231130
  Transmission Date: 20240110
  Serious: Yes (Hospitalization)
  Sender: FDA-Public Use
  Company Number: US-ARGENX-2022-ARGX-US002355

PATIENT
  Age: 53 Year
  Sex: Male
  Weight: 97.052 kg

DRUGS (2)
  1. VYVGART [Suspect]
     Active Substance: EFGARTIGIMOD ALFA-FCAB
     Indication: Myasthenia gravis
     Dosage: UNK
     Route: 042
     Dates: start: 20220928
  2. VYVGART [Suspect]
     Active Substance: EFGARTIGIMOD ALFA-FCAB
     Dosage: UNK
     Route: 042
     Dates: start: 20230426

REACTIONS (11)
  - Symptom recurrence [Not Recovered/Not Resolved]
  - Therapeutic product effect decreased [Unknown]
  - Dysarthria [Unknown]
  - Dysphagia [Unknown]
  - Gait inability [Recovering/Resolving]
  - Musculoskeletal chest pain [Recovering/Resolving]
  - Pain in extremity [Recovering/Resolving]
  - Nephrolithiasis [Recovering/Resolving]
  - Myasthenia gravis [Unknown]
  - Weight increased [Unknown]
  - Alopecia [Unknown]

NARRATIVE: CASE EVENT DATE: 20221101
